FAERS Safety Report 5056278-7 (Version None)
Quarter: 2006Q3

REPORT INFORMATION
  Report Type: 
  Country: None (occurrence: None)
  Receive Date: 20060720
  Receipt Date: 20060714
  Transmission Date: 20061208
  Serious: Yes (Death)
  Sender: FDA-Public Use
  Company Number: US-AVENTIS-200615904US

PATIENT

DRUGS (2)
  1. KETEK [Suspect]
     Dosage: DOSE: UNKNOWN
     Route: 048
  2. ANALGESICS [Concomitant]
     Dosage: DOSE: UNKNOWN

REACTIONS (1)
  - DEATH [None]
